FAERS Safety Report 6388871-3 (Version None)
Quarter: 2009Q4

REPORT INFORMATION
  Report Type: 
  Country: None (occurrence: None)
  Receive Date: 20091001
  Receipt Date: 20090922
  Transmission Date: 20100525
  Serious: Yes (Other)
  Sender: FDA-Public Use
  Company Number: ADR29812009

PATIENT

DRUGS (1)
  1. RAMIPRIL [Suspect]
     Indication: HYPERTENSION
     Dosage: OTHER
     Route: 050
     Dates: start: 20041015

REACTIONS (2)
  - HOLOPROSENCEPHALY [None]
  - PATERNAL DRUGS AFFECTING FOETUS [None]
